FAERS Safety Report 6504054-8 (Version None)
Quarter: 2009Q4

REPORT INFORMATION
  Report Type: 
  Country: None (occurrence: None)
  Receive Date: 20091216
  Receipt Date: 20091216
  Transmission Date: 20100525
  Serious: Yes (Hospitalization)
  Sender: FDA-Public Use
  Company Number: None

PATIENT
  Age: 44 Year
  Sex: Male
  Weight: 150.1 kg

DRUGS (2)
  1. ZOLMITRIPTAN [Suspect]
     Indication: HEADACHE
     Dosage: 2.5 MG PRN PO
     Route: 048
     Dates: start: 20090616, end: 20091202
  2. ZOLMITRIPTAN [Suspect]
     Indication: MIGRAINE
     Dosage: 2.5 MG PRN PO
     Route: 048
     Dates: start: 20090616, end: 20091202

REACTIONS (2)
  - HYPOTENSION [None]
  - SYNCOPE [None]
